FAERS Safety Report 14182977 (Version 2)
Quarter: 2018Q1

REPORT INFORMATION
  Report Type: Spontaneous
  Country: DE (occurrence: DE)
  Receive Date: 20171113
  Receipt Date: 20180227
  Transmission Date: 20180508
  Serious: Yes (Disabling)
  Sender: FDA-Public Use
  Company Number: DE-GLAXOSMITHKLINE-DE2017GSK170836

PATIENT
  Sex: Male

DRUGS (1)
  1. AVODART [Suspect]
     Active Substance: DUTASTERIDE
     Indication: PROSTATOMEGALY
     Dosage: UNK
     Route: 048
     Dates: start: 20170101, end: 20170901

REACTIONS (4)
  - Drug ineffective [Unknown]
  - Urinary incontinence [Not Recovered/Not Resolved]
  - Fatigue [Unknown]
  - Libido decreased [Unknown]

NARRATIVE: CASE EVENT DATE: 20170101
